FAERS Safety Report 4655411-6 (Version None)
Quarter: 2005Q2

REPORT INFORMATION
  Report Type: 
  Country: None (occurrence: None)
  Receive Date: 20050506
  Receipt Date: 20050425
  Transmission Date: 20051028
  Serious: Yes (Death)
  Sender: FDA-Public Use
  Company Number: CA-ABBOTT-05P-028-0298713-00

PATIENT
  Age: 78 Year
  Sex: Male

DRUGS (7)
  1. DILAUDID [Suspect]
     Indication: PAIN
     Route: 058
     Dates: start: 20040715, end: 20040715
  2. DILAUDID [Suspect]
     Dates: start: 20040713, end: 20040715
  3. LORAZEPAM [Suspect]
     Indication: DRUG USE FOR UNKNOWN INDICATION
     Route: 058
     Dates: start: 20040715
  4. ATROPINE [Suspect]
     Route: 058
     Dates: start: 20040712
  5. METOCLOPRAMIDE [Concomitant]
     Indication: NAUSEA
  6. SALBUTAMOL [Concomitant]
     Indication: DRUG USE FOR UNKNOWN INDICATION
  7. OXYGEN [Concomitant]
     Indication: DRUG USE FOR UNKNOWN INDICATION

REACTIONS (7)
  - CYANOSIS [None]
  - DYSKINESIA [None]
  - HYPERHIDROSIS [None]
  - MIOSIS [None]
  - OVERDOSE [None]
  - SHOCK [None]
  - TACHYPNOEA [None]
